FAERS Safety Report 13725746 (Version 2)
Quarter: 2017Q3

REPORT INFORMATION
  Report Type: Report from Study
  Country: IT (occurrence: IT)
  Receive Date: 20170707
  Receipt Date: 20170711
  Transmission Date: 20171127
  Serious: Yes (Life-Threatening, Hospitalization, Other)
  Sender: FDA-Public Use
  Company Number: IT-PFIZER INC-2017293101

PATIENT
  Age: 67 Year
  Sex: Female

DRUGS (11)
  1. RITUXIMAB. [Suspect]
     Active Substance: RITUXIMAB
     Indication: LYMPHOMA
     Dosage: 596.25 MG AT DAY 1 (596.25 MG,CYCLICAL)
     Dates: start: 20170215
  2. LONQUEX [Suspect]
     Active Substance: LIPEGFILGRASTIM
     Indication: GRANULOCYTOPENIA
     Dosage: 6 MG, CYCLIC
     Route: 058
     Dates: start: 20170219
  3. DESAMETASONE [Concomitant]
     Active Substance: DEXAMETHASONE
     Indication: PROPHYLAXIS OF NAUSEA AND VOMITING
     Dosage: 120 MG, CYCLICAL
     Route: 042
     Dates: start: 20170214, end: 20170414
  4. DESAMETASONE [Concomitant]
     Active Substance: DEXAMETHASONE
     Dosage: 16 MG, DAILY
     Dates: start: 20170619, end: 20170621
  5. RANITIDINE HYDROCHLORIDE. [Concomitant]
     Active Substance: RANITIDINE HYDROCHLORIDE
     Indication: ANTACID THERAPY
     Dosage: 100 MG (100 MG,1 IN 1 D)
     Route: 042
     Dates: start: 20170619, end: 20170621
  6. EPIRUBICIN HCL [Suspect]
     Active Substance: EPIRUBICIN HYDROCHLORIDE
     Indication: LYMPHOMA
     Dosage: 159 MG AT DAY 1 (159 MG,CYCLICAL)
     Dates: start: 20170522
  7. PALONOSETRON HYDROCHLORIDE. [Concomitant]
     Active Substance: PALONOSETRON HYDROCHLORIDE
     Indication: PROPHYLAXIS OF NAUSEA AND VOMITING
     Dosage: 0.25 MG, DAILY
     Route: 042
     Dates: start: 20170619, end: 20170621
  8. CLORFENAMINA MALEATO [Concomitant]
     Indication: ANTIALLERGIC THERAPY
     Dosage: 10 MG (10 MG,1 IN 1 D)
     Route: 042
     Dates: start: 20170619, end: 20170619
  9. IFOSFAMIDE. [Suspect]
     Active Substance: IFOSFAMIDE
     Indication: LYMPHOMA
     Dosage: AT DAY 1,2 AND 3 (11385 MG,CYCLICAL)
     Dates: start: 20170522
  10. ETOPOSIDE. [Suspect]
     Active Substance: ETOPOSIDE
     Indication: LYMPHOMA
     Dosage: 238.50 MG AT DAY 1,2 AND 3 (715.5 MG,CYCLICAL)
     Dates: start: 20170522
  11. MESNA. [Concomitant]
     Active Substance: MESNA
     Indication: PROPHYLACTIC CHEMOTHERAPY
     Dosage: 5088 MG (5088 MG,1 IN 1 D)
     Route: 042
     Dates: start: 20170619, end: 20170621

REACTIONS (1)
  - Transient ischaemic attack [Recovering/Resolving]

NARRATIVE: CASE EVENT DATE: 20170621
